FAERS Safety Report 12865246 (Version 1)
Quarter: 2016Q4

REPORT INFORMATION
  Report Type: Spontaneous
  Country: US (occurrence: US)
  Receive Date: 20161018
  Receipt Date: 20161018
  Transmission Date: 20170207
  Serious: Yes (Hospitalization)
  Sender: FDA-Public Use
  Company Number: None

PATIENT
  Age: 73 Year
  Sex: Male

DRUGS (8)
  1. JADENU [Suspect]
     Active Substance: DEFERASIROX
     Indication: MYELOPROLIFERATIVE NEOPLASM
     Route: 048
     Dates: start: 20150715
  2. JAKAFI [Concomitant]
     Active Substance: RUXOLITINIB
  3. MAGNES [Concomitant]
  4. ALLOPURIOL [Concomitant]
  5. VITAMIN D2 [Concomitant]
     Active Substance: ERGOCALCIFEROL
  6. CIPROFLOXACIN. [Concomitant]
     Active Substance: CIPROFLOXACIN
  7. MULIT VIT [Concomitant]
  8. CALC [Concomitant]

REACTIONS (3)
  - Dehydration [None]
  - Renal disorder [None]
  - Fatigue [None]

NARRATIVE: CASE EVENT DATE: 20161008
